FAERS Safety Report 5678623-1 (Version None)
Quarter: 2008Q1

REPORT INFORMATION
  Report Type: 
  Country: None (occurrence: None)
  Receive Date: 20080325
  Receipt Date: 20080312
  Transmission Date: 20080703
  Serious: Yes (Other)
  Sender: FDA-Public Use
  Company Number: IE-AMGEN-US256200

PATIENT
  Sex: Female
  Weight: 65 kg

DRUGS (11)
  1. ENBREL [Suspect]
     Indication: ARTHRITIS
     Route: 058
     Dates: start: 20070803
  2. TENOX [Concomitant]
     Route: 048
  3. DIOTROXIN [Concomitant]
     Route: 048
  4. NAPROSYN [Concomitant]
     Route: 048
  5. FUCIDINE CAP [Concomitant]
     Dosage: UNKNOWN
  6. CALCICHEW-D3 FORTE [Concomitant]
     Route: 048
  7. ARAVA [Concomitant]
     Route: 048
     Dates: start: 20060101
  8. DIXARIT [Concomitant]
     Route: 048
  9. PANTOPRAZOLE SODIUM [Concomitant]
  10. DICLOFENAC SODIUM [Concomitant]
     Dosage: UNKNOWN DOSE AS NEEDED
     Route: 061
  11. LIPITOR [Concomitant]
     Route: 048

REACTIONS (1)
  - LOWER RESPIRATORY TRACT INFECTION [None]
